FAERS Safety Report 4892678-3 (Version None)
Quarter: 2006Q1

REPORT INFORMATION
  Report Type: 
  Country: None (occurrence: None)
  Receive Date: 20060125
  Receipt Date: 20060125
  Transmission Date: 20060701
  Serious: Yes (Hospitalization)
  Sender: FDA-Public Use
  Company Number: None

PATIENT
  Age: 33 Year
  Sex: Male
  Weight: 65 kg

DRUGS (1)
  1. HYDRALAZINE [Suspect]
     Indication: HYPERTENSION
     Dosage: 20MG IV X 1
     Route: 042
     Dates: start: 20050813

REACTIONS (5)
  - ASTHMA [None]
  - BLOOD PRESSURE INCREASED [None]
  - EXTRACORPOREAL MEMBRANE OXYGENATION [None]
  - HYPERHIDROSIS [None]
  - RESPIRATORY DISTRESS [None]
